FAERS Safety Report 7439978-0 (Version None)
Quarter: 2011Q2

REPORT INFORMATION
  Report Type: 
  Country: None (occurrence: None)
  Receive Date: 20110427
  Receipt Date: 20110414
  Transmission Date: 20111010
  Serious: Yes (Other)
  Sender: FDA-Public Use
  Company Number: PHHY2011DE33434

PATIENT
  Sex: Female
  Weight: 70.6 kg

DRUGS (3)
  1. EXJADE [Suspect]
     Indication: MYELODYSPLASTIC SYNDROME
     Dosage: 500 MG,
     Route: 048
     Dates: start: 20100510, end: 20110413
  2. HYPNOREX [Concomitant]
     Dosage: 400 MG,
     Route: 048
     Dates: start: 20070503, end: 20110413
  3. ANAFRANIL [Concomitant]
     Dosage: 25 MG, UNK
     Route: 048
     Dates: start: 20070503, end: 20110413

REACTIONS (4)
  - EPISTAXIS [None]
  - MOUTH HAEMORRHAGE [None]
  - URINARY TRACT INFECTION [None]
  - GENERAL PHYSICAL HEALTH DETERIORATION [None]
